FAERS Safety Report 10135777 (Version 4)
Quarter: 2014Q2

REPORT INFORMATION
  Report Type: Spontaneous
  Country: MX (occurrence: MX)
  Receive Date: 20140428
  Receipt Date: 20140522
  Transmission Date: 20141212
  Serious: Yes (Other)
  Sender: FDA-Public Use
  Company Number: MX-009507513-1404MEX013088

PATIENT
  Age: 24 Year
  Sex: Female

DRUGS (1)
  1. IMPLANON [Suspect]
     Indication: CONTRACEPTION
     Dosage: STRENGTH: 60-70 UG/DAY WEEK 5-6, 35-45 UG/DAY AT THE END OF 1ST YEAR, 30-40 UG/DAY THE END OF THE 2N
     Route: 059
     Dates: start: 20130121

REACTIONS (7)
  - Cyst rupture [Unknown]
  - Cyst [Unknown]
  - Medical device complication [Not Recovered/Not Resolved]
  - Menorrhagia [Not Recovered/Not Resolved]
  - Device difficult to use [Not Recovered/Not Resolved]
  - Device difficult to use [Not Recovered/Not Resolved]
  - Abdominal pain [Unknown]
